FAERS Safety Report 7228188-8 (Version None)
Quarter: 2011Q1

REPORT INFORMATION
  Report Type: 
  Country: None (occurrence: None)
  Receive Date: 20110114
  Receipt Date: 20101209
  Transmission Date: 20110831
  Serious: Yes (Other)
  Sender: FDA-Public Use
  Company Number: US-CEPHALON-2010006297

PATIENT
  Sex: Female

DRUGS (2)
  1. FENTANYL CITRATE [Suspect]
     Indication: MIGRAINE
     Route: 002
  2. OXYCODONE [Concomitant]
     Dates: start: 20100101

REACTIONS (2)
  - DRUG PRESCRIBING ERROR [None]
  - KNEE ARTHROPLASTY [None]
